FAERS Safety Report 21414317 (Version 1)
Quarter: 2022Q4

REPORT INFORMATION
  Report Type: Spontaneous
  Country: JP (occurrence: None)
  Receive Date: 20221006
  Receipt Date: 20221006
  Transmission Date: 20230113
  Serious: Yes (Other)
  Sender: FDA-Public Use
  Company Number: 2022A331428

PATIENT
  Age: 62 Year
  Sex: Female

DRUGS (7)
  1. BENRALIZUMAB [Suspect]
     Active Substance: BENRALIZUMAB
     Indication: Asthma
     Dosage: 30 MG/8 WEEKS
     Route: 058
  2. PREDNISOLONE [Suspect]
     Active Substance: PREDNISOLONE
     Indication: Eosinophilic pneumonia
     Dosage: DOSE REDICED TO 10 MG/DAY
     Route: 048
  3. PREDNISOLONE [Suspect]
     Active Substance: PREDNISOLONE
     Indication: Asthma
     Dosage: DOSE REDICED TO 10 MG/DAY
     Route: 048
  4. PREDNISOLONE [Suspect]
     Active Substance: PREDNISOLONE
     Indication: Eosinophilic pneumonia
     Dosage: DOSE REDICED TO 8 MG/DAY
     Route: 048
  5. PREDNISOLONE [Suspect]
     Active Substance: PREDNISOLONE
     Indication: Asthma
     Dosage: DOSE REDICED TO 8 MG/DAY
     Route: 048
  6. PREDNISOLONE [Suspect]
     Active Substance: PREDNISOLONE
     Indication: Eosinophilic pneumonia
     Dosage: DOSE INCREASED TO 10 MG/DAY
     Route: 048
  7. PREDNISOLONE [Suspect]
     Active Substance: PREDNISOLONE
     Indication: Asthma
     Dosage: DOSE INCREASED TO 10 MG/DAY
     Route: 048

REACTIONS (1)
  - Eosinophilic granulomatosis with polyangiitis [Recovering/Resolving]
